FAERS Safety Report 4409937-0 (Version None)
Quarter: 2004Q3

REPORT INFORMATION
  Report Type: 
  Country: None (occurrence: None)
  Receive Date: 20040728
  Receipt Date: 20040719
  Transmission Date: 20050211
  Serious: Yes (Other)
  Sender: FDA-Public Use
  Company Number: FR-GLAXOSMITHKLINE-B0340224A

PATIENT
  Age: 65 Year
  Sex: Female

DRUGS (5)
  1. PAROXETINE HCL [Suspect]
     Indication: DEPRESSION
     Dosage: 20MG PER DAY
     Route: 048
  2. ZELITREX [Concomitant]
     Indication: HERPES ZOSTER
  3. RIVOTRIL [Concomitant]
     Indication: HERPES ZOSTER
  4. ATARAX [Concomitant]
     Indication: HERPES ZOSTER
  5. NEURONTIN [Concomitant]
     Indication: HERPES ZOSTER

REACTIONS (3)
  - CONJUNCTIVAL HAEMORRHAGE [None]
  - PROTHROMBIN TIME PROLONGED [None]
  - PROTHROMBIN TIME SHORTENED [None]
